FAERS Safety Report 19651244 (Version 1)
Quarter: 2021Q3

REPORT INFORMATION
  Report Type: Spontaneous
  Country: US (occurrence: US)
  Receive Date: 20210803
  Receipt Date: 20210803
  Transmission Date: 20211014
  Serious: No
  Sender: FDA-Public Use
  Company Number: US-FERRINGPH-2020FE08303

PATIENT
  Age: 41 Year
  Sex: Female
  Weight: 72.56 kg

DRUGS (1)
  1. ENDOMETRIN [Suspect]
     Active Substance: PROGESTERONE
     Indication: ASSISTED FERTILISATION
     Dosage: UNK
     Route: 067
     Dates: start: 20201113

REACTIONS (3)
  - Skin irritation [Recovered/Resolved]
  - Product packaging issue [Recovered/Resolved]
  - Product design issue [Recovered/Resolved]

NARRATIVE: CASE EVENT DATE: 202011
